FAERS Safety Report 4502235-6 (Version None)
Quarter: 2004Q4

REPORT INFORMATION
  Report Type: 
  Country: None (occurrence: None)
  Receive Date: 20041116
  Receipt Date: 20041104
  Transmission Date: 20050328
  Serious: Yes (Hospitalization)
  Sender: FDA-Public Use
  Company Number: AU-JNJFOC-20041101687

PATIENT
  Age: 82 Year
  Sex: Female

DRUGS (16)
  1. TRAMADOL HCL [Suspect]
     Route: 049
  2. GABAPENTIN [Suspect]
     Route: 049
  3. TRIMETHOPRIM [Suspect]
     Indication: URINARY TRACT DISORDER
     Route: 049
  4. BEKUNIS [Suspect]
     Route: 049
  5. BEKUNIS [Suspect]
     Route: 049
  6. BEKUNIS [Suspect]
     Route: 049
  7. BEKUNIS [Suspect]
     Indication: CONSTIPATION
     Route: 049
  8. DILTIAZEM HYDROCHLORIDE [Concomitant]
  9. HYDROCHLOROTHIAZIDE IRBESARTAN [Concomitant]
  10. HYDROCHLOROTHIAZIDE IRBESARTAN [Concomitant]
  11. SOFOLOL [Concomitant]
  12. ASPIRIN COMPOUND [Concomitant]
  13. ASPIRIN COMPOUND [Concomitant]
  14. ASPIRIN COMPOUND [Concomitant]
  15. COLOXYL WITH SENNA [Concomitant]
  16. COLOXYL WITH SENNA [Concomitant]

REACTIONS (3)
  - CONFUSIONAL STATE [None]
  - DRUG INTERACTION [None]
  - HYPONATRAEMIA [None]
